FAERS Safety Report 23011696 (Version 4)
Quarter: 2023Q4

REPORT INFORMATION
  Report Type: Report from Study
  Country: JP (occurrence: JP)
  Receive Date: 20230929
  Receipt Date: 20231213
  Transmission Date: 20240110
  Serious: Yes (Hospitalization)
  Sender: FDA-Public Use
  Company Number: JP-TAKEDA-2023TJP012686

PATIENT
  Age: 80 Year
  Sex: Male

DRUGS (32)
  1. LEUPROLIDE ACETATE [Suspect]
     Active Substance: LEUPROLIDE ACETATE
     Indication: Bulbospinal muscular atrophy congenital
     Dosage: 11.25 MILLIGRAM, Q3MONTHS
     Route: 058
     Dates: start: 20210113, end: 20230726
  2. FELBINAC [Concomitant]
     Active Substance: FELBINAC
     Indication: Bulbospinal muscular atrophy congenital
     Dosage: 40 GRAM
     Route: 065
     Dates: start: 20230726
  3. CELECOXIB [Concomitant]
     Active Substance: CELECOXIB
     Indication: Bulbospinal muscular atrophy congenital
     Dosage: 400 MILLIGRAM
     Route: 065
     Dates: start: 20220727, end: 20230725
  4. CELECOXIB [Concomitant]
     Active Substance: CELECOXIB
     Indication: Bulbospinal muscular atrophy congenital
     Dosage: 200 MILLIGRAM
     Route: 065
     Dates: start: 20230726
  5. ICOSAPENT ETHYL [Concomitant]
     Active Substance: ICOSAPENT ETHYL
     Indication: Product used for unknown indication
     Dosage: 1800 MILLIGRAM
     Route: 065
     Dates: start: 20211020
  6. CALONAL [Concomitant]
     Active Substance: ACETAMINOPHEN
     Indication: Prophylaxis
     Dosage: 600 MILLIGRAM
     Route: 065
     Dates: start: 20210602, end: 20210602
  7. CALONAL [Concomitant]
     Active Substance: ACETAMINOPHEN
     Indication: Prophylaxis
     Dosage: 600 MILLIGRAM
     Route: 065
     Dates: start: 20230919, end: 20230925
  8. SENNOSIDE MITA [Concomitant]
     Indication: Product used for unknown indication
     Dosage: 24 MILLIGRAM
     Route: 065
     Dates: start: 20220209
  9. Hypen [Concomitant]
     Indication: Bulbospinal muscular atrophy congenital
     Dosage: 200 MILLIGRAM
     Route: 065
     Dates: start: 20200909, end: 20220727
  10. TRAZODONE [Concomitant]
     Active Substance: TRAZODONE HYDROCHLORIDE
     Indication: Product used for unknown indication
     Dosage: 50 MILLIGRAM
     Route: 065
     Dates: start: 20220824
  11. TRAZODONE [Concomitant]
     Active Substance: TRAZODONE HYDROCHLORIDE
     Indication: Product used for unknown indication
     Dosage: 50 MILLIGRAM
     Route: 065
     Dates: start: 20200909, end: 20201111
  12. TRAZODONE [Concomitant]
     Active Substance: TRAZODONE HYDROCHLORIDE
     Indication: Product used for unknown indication
     Dosage: 25 MILLIGRAM
     Route: 065
     Dates: start: 20200811, end: 20200908
  13. TRAZODONE [Concomitant]
     Active Substance: TRAZODONE HYDROCHLORIDE
     Indication: Product used for unknown indication
     Dosage: 50 MILLIGRAM
     Route: 065
     Dates: start: 20220727, end: 20220823
  14. TRAZODONE [Concomitant]
     Active Substance: TRAZODONE HYDROCHLORIDE
     Indication: Product used for unknown indication
     Dosage: 50 MILLIGRAM
     Route: 065
     Dates: start: 20230726
  15. TRAZODONE [Concomitant]
     Active Substance: TRAZODONE HYDROCHLORIDE
     Indication: Product used for unknown indication
     Dosage: 25 MILLIGRAM?LAST ADMIN DATE- 2023
     Route: 065
     Dates: start: 20230725
  16. Pursennid [Concomitant]
     Indication: Product used for unknown indication
     Dosage: 24 MILLIGRAM
     Route: 065
     Dates: start: 20201014, end: 20210113
  17. AMBROXOL HYDROCHLORIDE [Concomitant]
     Active Substance: AMBROXOL HYDROCHLORIDE
     Indication: Product used for unknown indication
     Dosage: 45 MILLIGRAM
     Route: 065
  18. LOXOPROFEN SODIUM [Concomitant]
     Active Substance: LOXOPROFEN SODIUM
     Indication: Toothache
     Dosage: 60 MILLIGRAM
     Route: 065
     Dates: start: 20210728, end: 20211117
  19. BROTIZOLAM [Concomitant]
     Active Substance: BROTIZOLAM
     Indication: Product used for unknown indication
     Dosage: 0.25 MILLIGRAM
     Route: 065
  20. CANDESARTAN CILEXETIL [Concomitant]
     Active Substance: CANDESARTAN CILEXETIL
     Indication: Product used for unknown indication
     Dosage: 8 MILLIGRAM
     Route: 065
  21. KETOPROFEN [Concomitant]
     Active Substance: KETOPROFEN
     Indication: Bulbospinal muscular atrophy congenital
     Dosage: 40 MILLIGRAM
     Route: 065
     Dates: start: 20221214
  22. MOSAPRIDE CITRATE [Concomitant]
     Active Substance: MOSAPRIDE CITRATE
     Indication: Product used for unknown indication
     Dosage: 10 MILLIGRAM
     Route: 065
  23. BENIDIPINE HYDROCHLORIDE [Concomitant]
     Active Substance: BENIDIPINE HYDROCHLORIDE
     Indication: Product used for unknown indication
     Dosage: 4 MILLIGRAM
     Route: 065
  24. PANCRELIPASE [Concomitant]
     Active Substance: PANCRELIPASE
     Indication: Product used for unknown indication
     Dosage: 2 DOSAGE FORM
     Route: 065
  25. MAGNESIUM OXIDE [Concomitant]
     Active Substance: MAGNESIUM OXIDE
     Indication: Product used for unknown indication
     Dosage: 660 MILLIGRAM
     Route: 065
     Dates: start: 20220309
  26. BETAHISTINE MESILATE [Concomitant]
     Active Substance: BETAHISTINE MESILATE
     Indication: Bulbospinal muscular atrophy congenital
     Dosage: 12 MILLIGRAM
     Route: 065
     Dates: start: 20220511, end: 20220629
  27. PEMAFIBRATE [Concomitant]
     Active Substance: PEMAFIBRATE
     Indication: Product used for unknown indication
     Dosage: 0.2 MILLIGRAM
     Route: 065
     Dates: start: 20210512, end: 20210824
  28. VITAMINS NOS [Concomitant]
     Active Substance: VITAMINS
     Indication: Product used for unknown indication
     Dosage: 10 MICROGRAM
     Route: 065
  29. MIROGABALIN BESYLATE [Concomitant]
     Active Substance: MIROGABALIN BESYLATE
     Indication: Bulbospinal muscular atrophy congenital
     Dosage: 2.5 MILLIGRAM
     Route: 065
     Dates: start: 20201014, end: 20201110
  30. MIROGABALIN BESYLATE [Concomitant]
     Active Substance: MIROGABALIN BESYLATE
     Indication: Bulbospinal muscular atrophy congenital
     Dosage: 10 MILLIGRAM
     Route: 065
     Dates: start: 20201111, end: 20201208
  31. MIROGABALIN BESYLATE [Concomitant]
     Active Substance: MIROGABALIN BESYLATE
     Indication: Bulbospinal muscular atrophy congenital
     Dosage: 15 MILLIGRAM
     Route: 065
     Dates: start: 20201209, end: 20230725
  32. MIROGABALIN BESYLATE [Concomitant]
     Active Substance: MIROGABALIN BESYLATE
     Indication: Bulbospinal muscular atrophy congenital
     Dosage: 10 MILLIGRAM
     Route: 065
     Dates: start: 20230726

REACTIONS (1)
  - COVID-19 [Unknown]

NARRATIVE: CASE EVENT DATE: 20230919
